FAERS Safety Report 11627411 (Version 1)
Quarter: 2015Q4

REPORT INFORMATION
  Report Type: Report from Study
  Country: US (occurrence: US)
  Receive Date: 20151013
  Receipt Date: 20151013
  Transmission Date: 20160304
  Serious: Yes (Hospitalization, Other)
  Sender: FDA-Public Use
  Company Number: US-BAXALTA-2015BLT002122

PATIENT
  Sex: Male

DRUGS (1)
  1. GAMMAGARD LIQUID [Suspect]
     Active Substance: HUMAN IMMUNOGLOBULIN G
     Indication: PRIMARY IMMUNODEFICIENCY SYNDROME
     Dosage: UNK UNK, EVERY 4 WK
     Route: 042

REACTIONS (5)
  - Pyrexia [Unknown]
  - Chronic obstructive pulmonary disease [Unknown]
  - Salmonellosis [Unknown]
  - Fall [Unknown]
  - Foot fracture [Unknown]
